FAERS Safety Report 20320588 (Version 3)
Quarter: 2022Q2

REPORT INFORMATION
  Report Type: Spontaneous
  Country: JP (occurrence: JP)
  Receive Date: 20220111
  Receipt Date: 20220426
  Transmission Date: 20220721
  Serious: Yes (Life-Threatening, Hospitalization, Other)
  Sender: FDA-Public Use
  Company Number: JP-UCBJ-CD202200234UCBPHAPROD

PATIENT
  Age: 6 Decade
  Sex: Male

DRUGS (5)
  1. LEVETIRACETAM [Suspect]
     Active Substance: LEVETIRACETAM
     Indication: Epilepsy
     Dosage: 20000 MILLIGRAM (40 TABLETS OF 500MG)
     Route: 048
  2. BROTIZOLAM [Suspect]
     Active Substance: BROTIZOLAM
     Indication: Insomnia
     Dosage: 1.5 MILLIGRAM
     Route: 048
  3. TELMISARTAN [Suspect]
     Active Substance: TELMISARTAN
     Indication: Product used for unknown indication
     Dosage: 6 TABLETS OF TELMISARTAN OR AMLODIPINE OVER HALF A DAY
     Route: 048
  4. AMLODIPINE [Suspect]
     Active Substance: AMLODIPINE BESYLATE
     Indication: Product used for unknown indication
     Dosage: 6 TABLETS OF TELMISARTAN OR AMLODIPINE OVER HALF A DAY
     Route: 048
  5. AMLODIPINE BESYLATE\TELMISARTAN [Concomitant]
     Active Substance: AMLODIPINE BESYLATE\TELMISARTAN
     Indication: Hypertension
     Dosage: UNK

REACTIONS (6)
  - Suicide attempt [Unknown]
  - Nephropathy toxic [Recovered/Resolved]
  - Road traffic accident [Unknown]
  - Shock [Recovering/Resolving]
  - Depression [Not Recovered/Not Resolved]
  - Intentional overdose [Unknown]
